FAERS Safety Report 7201893-5 (Version None)
Quarter: 2010Q4

REPORT INFORMATION
  Report Type: 
  Country: None (occurrence: None)
  Receive Date: 20101215
  Receipt Date: 20101206
  Transmission Date: 20110411
  Serious: Yes (Death, Other)
  Sender: FDA-Public Use
  Company Number: TRP_07439_2010

PATIENT

DRUGS (12)
  1. RIBAVIRIN [Suspect]
     Indication: HEPATITIS C
     Dosage: SEE IMAGE
  2. RIBAVIRIN [Suspect]
     Indication: HEPATITIS C
     Dosage: SEE IMAGE
  3. RIBAVIRIN [Suspect]
     Indication: HEPATITIS C
     Dosage: SEE IMAGE
  4. RIBAVIRIN [Suspect]
     Indication: HEPATITIS C
     Dosage: SEE IMAGE
  5. RIBAVIRIN [Suspect]
     Indication: HEPATITIS C
     Dosage: SEE IMAGE
  6. PEGINTERFERON ALFA-2A [Suspect]
     Indication: HEPATITIS C
     Dosage: (180 ?G 1X/WEEK), (180 ?G 1X/WEEK, [APRICOT])
  7. PEGINTERFERON ALFA-2A [Suspect]
     Indication: HEPATITIS C
     Dosage: (180 ?G 1X/WEEK), (180 ?G 1X/WEEK, [APRICOT])
  8. INTERFERON ALFA-2A [Suspect]
     Indication: HEPATITIS C
     Dosage: (6 MILLION IU 3X/WEEK, [A5071]), (3 MILLION IU 3X/WEEK, [A5071]), (3 MILLION IU 3X/WEEK, [APRICOT])
  9. INTERFERON ALFA-2A [Suspect]
     Indication: HEPATITIS C
     Dosage: (6 MILLION IU 3X/WEEK, [A5071]), (3 MILLION IU 3X/WEEK, [A5071]), (3 MILLION IU 3X/WEEK, [APRICOT])
  10. INTERFERON ALFA-2A [Suspect]
     Indication: HEPATITIS C
     Dosage: (6 MILLION IU 3X/WEEK, [A5071]), (3 MILLION IU 3X/WEEK, [A5071]), (3 MILLION IU 3X/WEEK, [APRICOT])
  11. PEGINTERFERON ALFA-2B [Suspect]
     Indication: HEPATITIS C
     Dosage: 1.5 ?G/KG 1X/WEEK, [RIBAVIC])
  12. INTERFERON ALFA-2B [Suspect]
     Indication: HEPATITIS C
     Dosage: (3 MILLION UNITS [RIBAVIC])

REACTIONS (10)
  - ANAEMIA [None]
  - BLOOD LACTIC ACID INCREASED [None]
  - BODY MASS INDEX DECREASED [None]
  - FATIGUE [None]
  - NEUTROPENIA [None]
  - PYREXIA [None]
  - THROMBOCYTOPENIA [None]
  - TRANSAMINASES INCREASED [None]
  - UNRESPONSIVE TO STIMULI [None]
  - WEIGHT DECREASED [None]
